FAERS Safety Report 6018644-2 (Version None)
Quarter: 2008Q4

REPORT INFORMATION
  Report Type: 
  Country: None (occurrence: None)
  Receive Date: 20081223
  Receipt Date: 20081204
  Transmission Date: 20090506
  Serious: Yes (Hospitalization, Other)
  Sender: FDA-Public Use
  Company Number: GB-PFIZER INC-2008151170

PATIENT

DRUGS (10)
  1. SILDENAFIL CITRATE [Suspect]
     Indication: PULMONARY HYPERTENSION
     Route: 048
     Dates: start: 20060113
  2. WARFARIN SODIUM [Concomitant]
     Route: 048
  3. SPIRONOLACTONE [Concomitant]
     Route: 048
  4. BUMETANIDE [Concomitant]
     Route: 048
  5. STEMETIL ^AVENTIS PHARMA^ [Concomitant]
     Route: 048
  6. NASONEX [Concomitant]
     Dates: start: 20051222
  7. FEXOFENADINE [Concomitant]
     Route: 048
     Dates: start: 20060607
  8. DRAPOLENE [Concomitant]
     Route: 061
     Dates: start: 20060904
  9. ALOE VERA JUICE [Concomitant]
     Route: 048
     Dates: start: 20060904
  10. SALBUTAMOL INHALER [Concomitant]
     Dates: start: 20061028

REACTIONS (2)
  - PULMONARY HYPERTENSION [None]
  - RIGHT VENTRICULAR FAILURE [None]
